FAERS Safety Report 25984244 (Version 1)
Quarter: 2025Q4

REPORT INFORMATION
  Report Type: Spontaneous
  Country: US (occurrence: US)
  Receive Date: 20251031
  Receipt Date: 20251031
  Transmission Date: 20260117
  Serious: Yes (Other)
  Sender: APOTEX
  Company Number: US-APOTEX-2025AP031533

PATIENT
  Sex: Female

DRUGS (4)
  1. GEMCITABINE [Suspect]
     Active Substance: GEMCITABINE
     Indication: Transitional cell cancer of the renal pelvis and ureter
     Dosage: 1000 MILLIGRAM/SQ. METER, Q.3W, ON DAY 1 AND DAY 8
     Route: 065
  2. GEMCITABINE [Suspect]
     Active Substance: GEMCITABINE
     Indication: Hereditary non-polyposis colorectal cancer syndrome
  3. CISPLATIN [Suspect]
     Active Substance: CISPLATIN
     Indication: Transitional cell cancer of the renal pelvis and ureter
     Dosage: 35 MILLIGRAM/SQ. METER, Q.3W, ON DAY 1 AND DAY 8
     Route: 065
  4. CISPLATIN [Suspect]
     Active Substance: CISPLATIN
     Indication: Hereditary non-polyposis colorectal cancer syndrome

REACTIONS (3)
  - Neuropathy peripheral [Unknown]
  - Gastrointestinal disorder [Unknown]
  - Fatigue [Unknown]
